FAERS Safety Report 10290573 (Version 1)
Quarter: 2014Q3

REPORT INFORMATION
  Report Type: Spontaneous
  Country: US (occurrence: None)
  Receive Date: 20140707
  Receipt Date: 20140707
  Transmission Date: 20150326
  Serious: Yes (Other)
  Sender: FDA-Public Use
  Company Number: None

PATIENT
  Age: 75 Year
  Sex: Male
  Weight: 102.06 kg

DRUGS (1)
  1. NAFTIN [Suspect]
     Active Substance: NAFTIFINE HYDROCHLORIDE
     Indication: TINEA PEDIS
     Route: 061
     Dates: start: 20140201, end: 20140203

REACTIONS (2)
  - Application site haemorrhage [None]
  - Drug administered at inappropriate site [None]

NARRATIVE: CASE EVENT DATE: 20140203
